FAERS Safety Report 15896178 (Version 4)
Quarter: 2019Q2

REPORT INFORMATION
  Report Type: Report from Study
  Country: US (occurrence: US)
  Receive Date: 20190131
  Receipt Date: 20190409
  Transmission Date: 20190711
  Serious: Yes (Other)
  Sender: FDA-Public Use
  Company Number: US-JNJFOC-20181203392

PATIENT
  Age: 86 Year
  Sex: Female

DRUGS (5)
  1. IMBRUVICA [Suspect]
     Active Substance: IBRUTINIB
     Indication: CHRONIC LYMPHOCYTIC LEUKAEMIA
     Route: 048
     Dates: start: 20180911
  2. IMBRUVICA [Suspect]
     Active Substance: IBRUTINIB
     Indication: CHRONIC LYMPHOCYTIC LEUKAEMIA
     Route: 048
     Dates: start: 20190326
  3. IMBRUVICA [Suspect]
     Active Substance: IBRUTINIB
     Indication: CHRONIC LYMPHOCYTIC LEUKAEMIA
     Route: 048
     Dates: start: 20181110
  4. IMBRUVICA [Suspect]
     Active Substance: IBRUTINIB
     Indication: CHRONIC LYMPHOCYTIC LEUKAEMIA
     Route: 048
     Dates: start: 20190228
  5. IMBRUVICA [Suspect]
     Active Substance: IBRUTINIB
     Indication: CHRONIC LYMPHOCYTIC LEUKAEMIA
     Route: 048
     Dates: start: 20190103

REACTIONS (19)
  - Night sweats [Unknown]
  - Balance disorder [Unknown]
  - Incorrect dose administered [Unknown]
  - Constipation [Unknown]
  - Anxiety [Unknown]
  - Poor quality sleep [Unknown]
  - Palpitations [Unknown]
  - Off label use [Unknown]
  - Adverse drug reaction [Unknown]
  - Dyspepsia [Unknown]
  - Cardiac disorder [Unknown]
  - Hot flush [Unknown]
  - Blood pressure decreased [Unknown]
  - White blood cell count decreased [Unknown]
  - Visual impairment [Unknown]
  - Pericardial effusion [Unknown]
  - Muscle spasms [Unknown]
  - Headache [Unknown]
  - Asthenia [Unknown]

NARRATIVE: CASE EVENT DATE: 20190228
